FAERS Safety Report 5266671-5 (Version None)
Quarter: 2007Q1

REPORT INFORMATION
  Report Type: 
  Country: None (occurrence: None)
  Receive Date: 20070312
  Receipt Date: 20070301
  Transmission Date: 20070707
  Serious: Yes (Other)
  Sender: FDA-Public Use
  Company Number: 237832

PATIENT
  Sex: Female

DRUGS (1)
  1. ALTEPLASE (ALTEPLASE) PWDR + SOLVENT, INFUSION SOLN [Suspect]
     Indication: MYOCARDIAL INFARCTION
     Dosage: 100 MG, SINGLE, INTRAVENOUS
     Route: 042

REACTIONS (3)
  - CAESAREAN SECTION [None]
  - DRUG EXPOSURE DURING PREGNANCY [None]
  - PREMATURE LABOUR [None]
